FAERS Safety Report 8294458-8 (Version None)
Quarter: 2012Q2

REPORT INFORMATION
  Report Type: 
  Country: None (occurrence: None)
  Receive Date: 20120418
  Receipt Date: 20120413
  Transmission Date: 20120825
  Serious: No
  Sender: FDA-Public Use
  Company Number: US-PFIZER INC-2012092790

PATIENT
  Sex: Female
  Weight: 80.726 kg

DRUGS (1)
  1. NEURONTIN [Suspect]
     Dosage: UNK
     Route: 048

REACTIONS (4)
  - DIARRHOEA [None]
  - GLOSSITIS [None]
  - TONGUE DISORDER [None]
  - POOR QUALITY DRUG ADMINISTERED [None]
